FAERS Safety Report 16799379 (Version 1)
Quarter: 2019Q3

REPORT INFORMATION
  Report Type: Report from Study
  Country: None (occurrence: PL)
  Receive Date: 20190912
  Receipt Date: 20190912
  Transmission Date: 20191005
  Serious: Yes (Hospitalization)
  Sender: FDA-Public Use
  Company Number: PL-ABBVIE-19K-129-2920569-00

PATIENT

DRUGS (1)
  1. DUODOPA [Suspect]
     Active Substance: CARBIDOPA\LEVODOPA
     Indication: PARKINSON^S DISEASE
     Route: 050

REACTIONS (4)
  - Abdominal wall disorder [Recovering/Resolving]
  - Device connection issue [Unknown]
  - Device issue [Unknown]
  - Stoma complication [Unknown]

NARRATIVE: CASE EVENT DATE: 201909
